FAERS Safety Report 18539065 (Version 1)
Quarter: 2020Q4

REPORT INFORMATION
  Report Type: Spontaneous
  Country: US (occurrence: US)
  Receive Date: 20201123
  Receipt Date: 20201123
  Transmission Date: 20210114
  Serious: Yes (Other)
  Sender: FDA-Public Use
  Company Number: None

PATIENT
  Age: 23 Year
  Sex: Female
  Weight: 61.65 kg

DRUGS (2)
  1. REMICADE [Suspect]
     Active Substance: INFLIXIMAB
     Indication: SECONDARY IMMUNODEFICIENCY
     Dosage: ?          OTHER FREQUENCY:300MG Q 8WKS;?
     Route: 042
  2. PRIVIGEN 35GM IV Q 3 WEEKS [Concomitant]
     Dates: start: 20200714

REACTIONS (1)
  - Psoriasis [None]

NARRATIVE: CASE EVENT DATE: 20201119
